FAERS Safety Report 7729744-0 (Version None)
Quarter: 2011Q3

REPORT INFORMATION
  Report Type: 
  Country: None (occurrence: None)
  Receive Date: 20110906
  Receipt Date: 20110831
  Transmission Date: 20111222
  Serious: Yes (Hospitalization)
  Sender: FDA-Public Use
  Company Number: US-ROCHE-654570

PATIENT
  Sex: Female
  Weight: 96 kg

DRUGS (14)
  1. BEVACIZUMAB [Suspect]
     Dosage: FORM: VIALS; DOSE LEVEL: 15 MG/KG; LAST DOSE PRIOR TO SAE: 17 AUGUST 2009
     Route: 042
     Dates: start: 20090706
  2. VALSARTAN [Concomitant]
  3. HYDROCHLOROTHIAZIDE [Concomitant]
  4. CARBOPLATIN [Suspect]
     Route: 042
     Dates: start: 20090817
  5. DOCETAXEL [Suspect]
     Dosage: DOSE LEVEL: 75 MG/M2. LAST DOSE PRIOR TO SAE: 17 AUGUST 2009. DOSE FORM: VIALS
     Route: 042
     Dates: start: 20090706
  6. CARBOPLATIN [Suspect]
     Dosage: DOSE LEVEL: 06 AUC. DOSE FORM: VIALS. LAST DOSE PRIOR TO SAE: 17 AUGUST 2009
     Route: 042
     Dates: start: 20090706
  7. PROCHLORPERAZINE [Concomitant]
     Dates: start: 20090708
  8. MAALOX [Concomitant]
     Dates: start: 20090716
  9. MILK OF MAGNESIA TAB [Concomitant]
     Dates: start: 20090827
  10. ATIVAN [Concomitant]
     Dates: start: 20090806
  11. NEXIUM [Concomitant]
     Dates: start: 20090101
  12. TRASTUZUMAB [Suspect]
     Dosage: DOSE LEVEL: 6 MG/KG. LAST DOSE PRIOR TO SAE: 17 AUGUST 2009. FORM: VIALS
     Route: 042
     Dates: start: 20090706
  13. COLACE [Concomitant]
     Dates: start: 20090827
  14. LUNESTA [Concomitant]
     Dates: start: 20090827

REACTIONS (2)
  - GASTRITIS [None]
  - GASTRIC HAEMORRHAGE [None]
